FAERS Safety Report 13211078 (Version 1)
Quarter: 2017Q1

REPORT INFORMATION
  Report Type: Spontaneous
  Country: US (occurrence: US)
  Receive Date: 20170210
  Receipt Date: 20170210
  Transmission Date: 20170428
  Serious: Yes (Other)
  Sender: FDA-Public Use
  Company Number: None

PATIENT
  Age: 83 Year
  Sex: Male
  Weight: 75 kg

DRUGS (14)
  1. LIPITOR [Concomitant]
     Active Substance: ATORVASTATIN CALCIUM
  2. NOVOLOG [Concomitant]
     Active Substance: INSULIN ASPART
  3. VITAMIN B12 [Concomitant]
     Active Substance: CYANOCOBALAMIN
  4. DITROPAN XL [Concomitant]
     Active Substance: OXYBUTYNIN CHLORIDE
  5. COUMADIN [Concomitant]
     Active Substance: WARFARIN SODIUM
  6. DILTIAZEM. [Concomitant]
     Active Substance: DILTIAZEM
  7. OSCAL [Concomitant]
     Active Substance: CALCIUM CARBONATE
  8. LASIX [Concomitant]
     Active Substance: FUROSEMIDE
  9. XTANDI [Suspect]
     Active Substance: ENZALUTAMIDE
     Indication: HORMONE-REFRACTORY PROSTATE CANCER
     Route: 048
  10. LANTUS [Concomitant]
     Active Substance: INSULIN GLARGINE
  11. DIGOXIN. [Concomitant]
     Active Substance: DIGOXIN
  12. TYLENOL [Concomitant]
     Active Substance: ACETAMINOPHEN
  13. XTANDI [Suspect]
     Active Substance: ENZALUTAMIDE
     Indication: PROSTATE CANCER METASTATIC
     Route: 048
  14. PEPCID [Concomitant]
     Active Substance: FAMOTIDINE

REACTIONS (3)
  - Toxicity to various agents [None]
  - Oedema peripheral [None]
  - Cardioactive drug level increased [None]

NARRATIVE: CASE EVENT DATE: 20170124
